FAERS Safety Report 8507813-5 (Version None)
Quarter: 2012Q3

REPORT INFORMATION
  Report Type: 
  Country: None (occurrence: None)
  Receive Date: 20120713
  Receipt Date: 20120711
  Transmission Date: 20120928
  Serious: Yes (Death, Other)
  Sender: FDA-Public Use
  Company Number: PHEH2012US000508

PATIENT
  Sex: Female

DRUGS (1)
  1. ZOMETA [Suspect]

REACTIONS (19)
  - OEDEMA [None]
  - METASTASES TO BONE [None]
  - METASTASES TO LIVER [None]
  - NEOPLASM MALIGNANT [None]
  - BREAST MASS [None]
  - BREAST CANCER [None]
  - METASTASES TO CENTRAL NERVOUS SYSTEM [None]
  - BACK PAIN [None]
  - OSTEONECROSIS OF JAW [None]
  - SCOLIOSIS [None]
  - PLEURAL EFFUSION [None]
  - INTESTINAL OBSTRUCTION [None]
  - METASTASES TO SPINE [None]
  - HEADACHE [None]
  - HYPERTENSION [None]
  - METASTASES TO ABDOMINAL CAVITY [None]
  - ABDOMINAL PAIN [None]
  - NAUSEA [None]
  - ATELECTASIS [None]
